FAERS Safety Report 7225826-0 (Version None)
Quarter: 2011Q1

REPORT INFORMATION
  Report Type: 
  Country: None (occurrence: None)
  Receive Date: 20110113
  Receipt Date: 20110105
  Transmission Date: 20110831
  Serious: Yes (Other)
  Sender: FDA-Public Use
  Company Number: US-ELI_LILLY_AND_COMPANY-US201101001481

PATIENT
  Age: 56 Year
  Sex: Female

DRUGS (1)
  1. BYETTA [Suspect]
     Indication: TYPE 2 DIABETES MELLITUS
     Dosage: 5 UG, 2/D
     Route: 058
     Dates: start: 20051129, end: 20060213

REACTIONS (5)
  - DYSPNOEA [None]
  - NAUSEA [None]
  - VENTRICULAR TACHYCARDIA [None]
  - CHEST DISCOMFORT [None]
  - ARRHYTHMIA [None]
